FAERS Safety Report 4730340-8 (Version None)
Quarter: 2005Q3

REPORT INFORMATION
  Report Type: 
  Country: None (occurrence: None)
  Receive Date: 20050725
  Receipt Date: 20050413
  Transmission Date: 20060218
  Serious: No
  Sender: FDA-Public Use
  Company Number: USA050495517

PATIENT
  Age: 41 Year
  Sex: Female

DRUGS (2)
  1. STRATTERA [Suspect]
     Indication: ATTENTION DEFICIT/HYPERACTIVITY DISORDER
     Dosage: 25 MG DAY
     Dates: start: 20050301
  2. VITAMINS NOS [Concomitant]

REACTIONS (3)
  - DRUG INEFFECTIVE [None]
  - HOT FLUSH [None]
  - NIGHT SWEATS [None]
